FAERS Safety Report 24701449 (Version 2)
Quarter: 2024Q4

REPORT INFORMATION
  Report Type: Report from Study
  Country: IE (occurrence: GB)
  Receive Date: 20241205
  Receipt Date: 20241207
  Transmission Date: 20250114
  Serious: Yes (Other)
  Sender: ABBVIE
  Company Number: IE-JNJFOC-20240548396

PATIENT
  Age: 71 Year
  Sex: Female

DRUGS (5)
  1. IMBRUVICA [Suspect]
     Active Substance: IBRUTINIB
     Indication: Chronic lymphocytic leukaemia
     Route: 048
     Dates: start: 20160722
  2. MACRODANTIN [Concomitant]
     Active Substance: NITROFURANTOIN
     Indication: Product used for unknown indication
  3. CYCLIZINE [Concomitant]
     Active Substance: CYCLIZINE
     Indication: Product used for unknown indication
  4. LEVOTHYROXINE [Concomitant]
     Active Substance: LEVOTHYROXINE
     Indication: Product used for unknown indication
     Dosage: 50MCG
  5. DIAZEPAM\ISOPROPAMIDE IODIDE [Concomitant]
     Active Substance: DIAZEPAM\ISOPROPAMIDE IODIDE
     Indication: Product used for unknown indication

REACTIONS (4)
  - Lower respiratory tract infection [Recovered/Resolved]
  - Liver function test abnormal [Unknown]
  - Kidney infection [Recovered/Resolved]
  - Hypersensitivity [Unknown]

NARRATIVE: CASE EVENT DATE: 20240101
